FAERS Safety Report 6633145-6 (Version None)
Quarter: 2010Q1

REPORT INFORMATION
  Report Type: 
  Country: None (occurrence: None)
  Receive Date: 20100312
  Receipt Date: 20100304
  Transmission Date: 20100710
  Serious: Yes (Life-Threatening, Hospitalization)
  Sender: FDA-Public Use
  Company Number: PHEH2001US03077

PATIENT
  Age: 32 Year
  Sex: Female
  Weight: 75.9 kg

DRUGS (1)
  1. STI571/CGP57148B T35717+CAPS [Suspect]
     Indication: GASTROINTESTINAL STROMAL TUMOUR
     Dosage: 400 MG, BID
     Route: 048
     Dates: start: 20010203, end: 20010303

REACTIONS (12)
  - ANAEMIA [None]
  - CARDIAC MURMUR [None]
  - COLD SWEAT [None]
  - DYSPNOEA [None]
  - HAEMORRHAGE [None]
  - HEPATIC HAEMATOMA [None]
  - HEPATIC PAIN [None]
  - NAUSEA [None]
  - OEDEMA PERIPHERAL [None]
  - PALPITATIONS [None]
  - TUMOUR LYSIS SYNDROME [None]
  - VOMITING [None]
